FAERS Safety Report 5805614-X (Version None)
Quarter: 2008Q3

REPORT INFORMATION
  Report Type: 
  Country: None (occurrence: None)
  Receive Date: 20080710
  Receipt Date: 20080320
  Transmission Date: 20090109
  Serious: No
  Sender: FDA-Public Use
  Company Number: US-BAYER-200817761NA

PATIENT
  Age: 37 Year
  Sex: Female
  Weight: 57 kg

DRUGS (1)
  1. MIRENA [Suspect]
     Indication: CONTRACEPTION
     Route: 015
     Dates: start: 20071201, end: 20080307

REACTIONS (4)
  - IUCD COMPLICATION [None]
  - PROCEDURAL PAIN [None]
  - SENSATION OF FOREIGN BODY [None]
  - VAGINAL HAEMORRHAGE [None]
